FAERS Safety Report 20351007 (Version 3)
Quarter: 2022Q1

REPORT INFORMATION
  Report Type: Spontaneous
  Country: CH (occurrence: CH)
  Receive Date: 20220119
  Receipt Date: 20220207
  Transmission Date: 20220423
  Serious: Yes (Other)
  Sender: FDA-Public Use
  Company Number: CH-KOREA IPSEN Pharma-2022-01200

PATIENT
  Age: 47 Year
  Sex: Female
  Weight: 58 kg

DRUGS (3)
  1. BOTULINUM TOXIN TYPE A [Suspect]
     Active Substance: BOTULINUM TOXIN TYPE A
     Indication: Skin wrinkling
     Dosage: DOSE NOT REPORTED
     Route: 065
     Dates: start: 20211221, end: 20211221
  2. IRON [Concomitant]
     Active Substance: IRON
  3. VITA COLLAGENS [Concomitant]

REACTIONS (4)
  - Swelling [Recovering/Resolving]
  - Swelling face [Recovering/Resolving]
  - Fatigue [Not Recovered/Not Resolved]
  - Renal pain [Unknown]

NARRATIVE: CASE EVENT DATE: 20211201
